FAERS Safety Report 16347880 (Version 2)
Quarter: 2019Q2

REPORT INFORMATION
  Report Type: Spontaneous
  Country: US (occurrence: US)
  Receive Date: 20190523
  Receipt Date: 20190530
  Transmission Date: 20190711
  Serious: Yes (Other)
  Sender: FDA-Public Use
  Company Number: US-HORIZON-PEN-0511-2019

PATIENT
  Age: 78 Year
  Sex: Female

DRUGS (10)
  1. NORCO [Concomitant]
     Active Substance: ACETAMINOPHEN\HYDROCODONE BITARTRATE
  2. RITUXAN [Concomitant]
     Active Substance: RITUXIMAB
  3. MYRBETRIQ [Concomitant]
     Active Substance: MIRABEGRON
  4. IVIG [Concomitant]
     Active Substance: HUMAN IMMUNOGLOBULIN G
  5. MUPIROCIN. [Concomitant]
     Active Substance: MUPIROCIN
  6. PENNSAID [Suspect]
     Active Substance: DICLOFENAC SODIUM
     Indication: ARTHRITIS
     Dosage: ONCE A DAY/SPARINGLY
  7. LORAZEPAM. [Concomitant]
     Active Substance: LORAZEPAM
  8. DOXYCYCLINE. [Concomitant]
     Active Substance: DOXYCYCLINE
  9. GABAPENTIN. [Concomitant]
     Active Substance: GABAPENTIN
  10. BENADRYL [Concomitant]
     Active Substance: DIPHENHYDRAMINE HYDROCHLORIDE

REACTIONS (7)
  - Fall [Recovered/Resolved]
  - Impaired healing [Recovering/Resolving]
  - Off label use [Not Recovered/Not Resolved]
  - Wrist fracture [Not Recovered/Not Resolved]
  - Wrong technique in product usage process [Not Recovered/Not Resolved]
  - Expired product administered [Not Recovered/Not Resolved]
  - Prescription drug used without a prescription [Not Recovered/Not Resolved]
